FAERS Safety Report 23134827 (Version 1)
Quarter: 2023Q4

REPORT INFORMATION
  Report Type: Spontaneous
  Country: ES (occurrence: ES)
  Receive Date: 20231101
  Receipt Date: 20231101
  Transmission Date: 20240109
  Serious: Yes (Other)
  Sender: FDA-Public Use
  Company Number: ES-FreseniusKabi-FK202317359

PATIENT
  Sex: Female

DRUGS (2)
  1. IDACIO [Suspect]
     Active Substance: ADALIMUMAB-AACF
     Indication: Rheumatoid arthritis
     Dosage: 400 MG?SECOND DOSE OF IDACIO
     Route: 058
     Dates: start: 20231025
  2. IDACIO [Suspect]
     Active Substance: ADALIMUMAB-AACF
     Dosage: FIRST DOSE
     Dates: start: 20231011

REACTIONS (12)
  - Dyskinesia [Unknown]
  - Pain [Unknown]
  - Myalgia [Unknown]
  - Diarrhoea [Unknown]
  - Headache [Unknown]
  - Fatigue [Unknown]
  - Abdominal pain upper [Unknown]
  - Vomiting [Unknown]
  - Anxiety [Unknown]
  - Migraine [Unknown]
  - Sneezing [Unknown]
  - Discomfort [Unknown]
